FAERS Safety Report 20553147 (Version 2)
Quarter: 2022Q3

REPORT INFORMATION
  Report Type: Spontaneous
  Country: US (occurrence: US)
  Receive Date: 20220304
  Receipt Date: 20220905
  Transmission Date: 20221026
  Serious: Yes (Disabling)
  Sender: FDA-Public Use
  Company Number: US-ORGANON-O2203USA000200

PATIENT

DRUGS (3)
  1. SINGULAIR [Suspect]
     Active Substance: MONTELUKAST SODIUM
     Indication: Asthma
     Dosage: TAKE 1 TABLET BY MOUTH EVERYDAY
     Route: 048
     Dates: start: 2010, end: 2012
  2. SINGULAIR [Suspect]
     Active Substance: MONTELUKAST SODIUM
     Indication: Asthma
     Dosage: 1 TABLET EVERY EVENING
     Route: 048
  3. MONTELUKAST [Suspect]
     Active Substance: MONTELUKAST SODIUM
     Indication: Asthma prophylaxis
     Dosage: ONE TABLET BY MOUTH AT BEDTIME
     Route: 048
     Dates: end: 20061115

REACTIONS (3)
  - Social anxiety disorder [Not Recovered/Not Resolved]
  - Neuropsychiatric symptoms [Not Recovered/Not Resolved]
  - Depression [Not Recovered/Not Resolved]
